FAERS Safety Report 4620083-3 (Version None)
Quarter: 2005Q1

REPORT INFORMATION
  Report Type: 
  Country: None (occurrence: None)
  Receive Date: 20050324
  Receipt Date: 20050316
  Transmission Date: 20050727
  Serious: Yes (Hospitalization)
  Sender: FDA-Public Use
  Company Number: 2005045816

PATIENT
  Age: 84 Year
  Sex: Female
  Weight: 58 kg

DRUGS (1)
  1. NORVASC [Suspect]
     Indication: HYPERTENSION
     Dosage: 5 MG (5 MG, 1 IN 1 D), ORAL
     Route: 048
     Dates: end: 20050315

REACTIONS (5)
  - CARDIAC DISORDER [None]
  - ELECTROCARDIOGRAM QT PROLONGED [None]
  - HYPOCALCAEMIA [None]
  - MYALGIA [None]
  - TETANY [None]
